FAERS Safety Report 21297394 (Version 1)
Quarter: 2022Q3

REPORT INFORMATION
  Report Type: Spontaneous
  Country: US (occurrence: None)
  Receive Date: 20220902
  Receipt Date: 20220902
  Transmission Date: 20221027
  Serious: No
  Sender: FDA-Public Use
  Company Number: None

PATIENT
  Age: 46 Year
  Sex: Female

DRUGS (1)
  1. IXEKIZUMAB [Suspect]
     Active Substance: IXEKIZUMAB
     Indication: Psoriasis
     Route: 058
     Dates: start: 20220525, end: 20220613

REACTIONS (7)
  - Rash [None]
  - Urticaria [None]
  - Pruritus [None]
  - Urticaria cholinergic [None]
  - Rash [None]
  - Rash [None]
  - Oral candidiasis [None]

NARRATIVE: CASE EVENT DATE: 20220602
